FAERS Safety Report 20779202 (Version 2)
Quarter: 2022Q4

REPORT INFORMATION
  Report Type: Spontaneous
  Country: JP (occurrence: JP)
  Receive Date: 20220503
  Receipt Date: 20221103
  Transmission Date: 20230113
  Serious: Yes (Death)
  Sender: FDA-Public Use
  Company Number: JP-COLLEGIUM PHARMACEUTICAL, INC.-2022CGM00272

PATIENT

DRUGS (1)
  1. TAPENTADOL [Suspect]
     Active Substance: TAPENTADOL
     Indication: Product used for unknown indication
     Dosage: 400 MG, 1X/DAY
     Route: 048

REACTIONS (3)
  - Neoplasm malignant [Fatal]
  - Unevaluable event [Unknown]
  - Overdose [None]
